FAERS Safety Report 7151154-8 (Version None)
Quarter: 2010Q4

REPORT INFORMATION
  Report Type: 
  Country: None (occurrence: None)
  Receive Date: 20101210
  Receipt Date: 20101202
  Transmission Date: 20110411
  Serious: Yes (Hospitalization, Other)
  Sender: FDA-Public Use
  Company Number: FR-ABBOTT-10P-056-0689542-00

PATIENT
  Age: 42 Year
  Sex: Male

DRUGS (7)
  1. NORVIR [Suspect]
     Indication: HIV INFECTION
     Route: 048
     Dates: start: 20090401, end: 20100921
  2. TRIAMCINOLONE ACETONIDE [Interacting]
     Indication: INTERVERTEBRAL DISC DISORDER
     Route: 014
     Dates: end: 20100715
  3. KIVEXA [Concomitant]
     Indication: HIV INFECTION
  4. ETRAVIRINE [Concomitant]
     Indication: HIV INFECTION
  5. RALTEGRAVIR [Concomitant]
     Indication: HIV INFECTION
     Dates: start: 20090401
  6. DARUNAVIR [Concomitant]
     Indication: HIV INFECTION
     Dates: start: 20100423
  7. LEVOTHYROX [Concomitant]
     Indication: HYPOTHYROIDISM
     Dates: start: 20020101

REACTIONS (5)
  - BONE DENSITY DECREASED [None]
  - CUSHING'S SYNDROME [None]
  - DRUG INTERACTION [None]
  - INTERVERTEBRAL DISC DISORDER [None]
  - LIPODYSTROPHY ACQUIRED [None]
